FAERS Safety Report 18172276 (Version 1)
Quarter: 2020Q3

REPORT INFORMATION
  Report Type: Spontaneous
  Country: FR (occurrence: FR)
  Receive Date: 20200820
  Receipt Date: 20200820
  Transmission Date: 20201103
  Serious: Yes (Hospitalization)
  Sender: FDA-Public Use
  Company Number: FR-AUROBINDO-AUR-APL-2020-039799

PATIENT
  Age: 65 Year
  Sex: Male
  Weight: 57 kg

DRUGS (8)
  1. FUMAFER [Suspect]
     Active Substance: FERROUS FUMARATE
     Indication: ANAEMIA
     Dosage: 1 DOSAGE FORM, ONCE A DAY
     Route: 048
     Dates: start: 20200602
  2. MICROPAKINE [Suspect]
     Active Substance: VALPROATE SODIUM
     Dosage: 1000 MILLIGRAM, ONCE A DAY
     Route: 048
     Dates: start: 20150101
  3. HALDOL DECANOAS [Suspect]
     Active Substance: HALOPERIDOL DECANOATE
     Indication: SCHIZOPHRENIA
     Dosage: 150 MILLIGRAM, FOR 1 MONTH
     Route: 030
     Dates: start: 20100101
  4. PRINCI B [PYRIDOXINE HYDROCHLORIDE;THIAMINE MONONITRATE] [Suspect]
     Active Substance: PYRIDOXINE\THIAMINE
     Indication: ALCOHOL ABUSE
     Dosage: 3 DOSAGE FORM, ONCE A DAY
     Route: 048
     Dates: start: 20200611
  5. PARACETAMOL [Suspect]
     Active Substance: ACETAMINOPHEN
     Indication: PAIN
     Dosage: 4000 MILLIGRAM, ONCE A DAY (SI BESOIN)
     Route: 048
     Dates: start: 20150101
  6. MICROPAKINE [Suspect]
     Active Substance: VALPROATE SODIUM
     Indication: EPILEPSY
     Dosage: 500 MILLIGRAM, ONCE A DAY
     Route: 048
     Dates: start: 20150101
  7. MOVICOL [Suspect]
     Active Substance: POLYETHYLENE GLYCOL 3350\POTASSIUM CHLORIDE\SODIUM BICARBONATE\SODIUM CHLORIDE
     Indication: CONSTIPATION
     Dosage: 2 DOSAGE FORM, ONCE A DAY (SI BESOIN)
     Route: 048
     Dates: start: 20120101
  8. SERESTA [Suspect]
     Active Substance: OXAZEPAM
     Indication: MENTAL DISORDER
     Dosage: 25 MILLIGRAM, ONCE A DAY (SI BESOIN)
     Route: 048
     Dates: start: 20110101

REACTIONS (1)
  - Hypoglycaemia [Not Recovered/Not Resolved]

NARRATIVE: CASE EVENT DATE: 20200713
